FAERS Safety Report 12862340 (Version 1)
Quarter: 2016Q4

REPORT INFORMATION
  Report Type: Spontaneous
  Country: US (occurrence: US)
  Receive Date: 20161019
  Receipt Date: 20161019
  Transmission Date: 20170207
  Serious: Yes (Other)
  Sender: FDA-Public Use
  Company Number: US-WARNER CHILCOTT, LLC-1058521

PATIENT
  Age: 55 Year
  Sex: Female

DRUGS (1)
  1. ACTONEL [Suspect]
     Active Substance: RISEDRONATE SODIUM
     Indication: OSTEOPOROSIS
     Route: 048
     Dates: start: 2014, end: 2014

REACTIONS (1)
  - Dupuytren^s contracture [Not Recovered/Not Resolved]

NARRATIVE: CASE EVENT DATE: 2014
